FAERS Safety Report 8576370-X (Version None)
Quarter: 2012Q3

REPORT INFORMATION
  Report Type: 
  Country: None (occurrence: None)
  Receive Date: 20120807
  Receipt Date: 20120803
  Transmission Date: 20120928
  Serious: Yes (Death, Hospitalization)
  Sender: FDA-Public Use
  Company Number: RO-ROCHE-1064872

PATIENT
  Sex: Male
  Weight: 55 kg

DRUGS (10)
  1. ALLOPURINOL [Concomitant]
     Indication: MANTLE CELL LYMPHOMA
     Dates: start: 20111228
  2. ACID FOLIC [Concomitant]
     Indication: MANTLE CELL LYMPHOMA
     Dates: start: 20111001
  3. URSO FALK [Concomitant]
     Indication: MANTLE CELL LYMPHOMA
     Dates: start: 20120225
  4. MABTHERA [Suspect]
     Indication: MANTLE CELL LYMPHOMA
     Route: 042
     Dates: start: 20111228, end: 20120424
  5. SULFAMETHOXAZOLE AND TRIMETHOPRIM [Concomitant]
     Indication: MANTLE CELL LYMPHOMA
     Dates: start: 20120101, end: 20120425
  6. ACYCLOVIR [Concomitant]
     Indication: MANTLE CELL LYMPHOMA
     Dates: start: 20120101
  7. LAGOSA [Concomitant]
     Dates: start: 20120403
  8. ARGININ [Concomitant]
     Indication: MANTLE CELL LYMPHOMA
     Dates: start: 20120403
  9. FLUDARABINE PHOSPHATE [Suspect]
     Indication: MANTLE CELL LYMPHOMA
  10. VITAMIN B6 [Concomitant]
     Indication: MANTLE CELL LYMPHOMA
     Dates: start: 20111001, end: 20120429

REACTIONS (2)
  - FEBRILE NEUTROPENIA [None]
  - SEPSIS [None]
